FAERS Safety Report 19153699 (Version 2)
Quarter: 2021Q3

REPORT INFORMATION
  Report Type: Spontaneous
  Country: US (occurrence: US)
  Receive Date: 20210419
  Receipt Date: 20210927
  Transmission Date: 20211014
  Serious: No
  Sender: FDA-Public Use
  Company Number: US-PFIZER INC-2021320280

PATIENT
  Age: 77 Year
  Sex: Male
  Weight: 74.83 kg

DRUGS (3)
  1. SUTENT [Suspect]
     Active Substance: SUNITINIB MALATE
     Indication: AMYLOIDOSIS
     Dosage: 50 MG, DAILY
     Route: 048
  2. BCG VACCINE LIVE INTRAVESICAL (TICE) [Concomitant]
     Indication: IMMUNISATION
     Dosage: UNK
  3. SUTENT [Suspect]
     Active Substance: SUNITINIB MALATE
     Indication: PLASMA CELL MYELOMA

REACTIONS (3)
  - Epistaxis [Unknown]
  - Hypertension [Unknown]
  - Off label use [Unknown]
